FAERS Safety Report 17113174 (Version 17)
Quarter: 2024Q2

REPORT INFORMATION
  Report Type: Spontaneous
  Country: DE (occurrence: DE)
  Receive Date: 20191204
  Receipt Date: 20240530
  Transmission Date: 20240715
  Serious: Yes (Death, Life-Threatening, Hospitalization, Other)
  Sender: FDA-Public Use
  Company Number: DE-CELLTRION INC.-2019DE027035

PATIENT

DRUGS (60)
  1. RITUXIMAB [Suspect]
     Active Substance: RITUXIMAB
     Indication: Encephalitis
     Dosage: 1 G (BETWEEN 2 AND 3 MONTHS AFTER DISEASE EXACERBATION)
     Route: 065
  2. RITUXIMAB [Suspect]
     Active Substance: RITUXIMAB
     Indication: Plasma cell myeloma
     Dosage: 1 G (4 MONTHS AFTER DISEASE EXACERBATION)
     Route: 065
  3. RITUXIMAB [Suspect]
     Active Substance: RITUXIMAB
     Indication: Encephalitis autoimmune
     Dosage: 1 G (7 MONTHS AFTER DISEASE EXACERBATION)
     Route: 065
  4. RITUXIMAB [Suspect]
     Active Substance: RITUXIMAB
     Indication: Immunosuppression
     Dosage: 1 G (12 MONTHS AFTER DISEASE EXACERBATION)
     Route: 065
  5. RITUXIMAB [Suspect]
     Active Substance: RITUXIMAB
     Indication: Encephalitis
     Dosage: UNK
     Route: 065
  6. RITUXIMAB [Suspect]
     Active Substance: RITUXIMAB
     Dosage: 1 G
     Route: 065
  7. RITUXIMAB [Suspect]
     Active Substance: RITUXIMAB
     Dosage: 1 G
  8. BORTEZOMIB [Suspect]
     Active Substance: BORTEZOMIB
     Indication: Encephalitis
     Dosage: 3 CYCLES OF BORTEZOMIB 11.3 MG/M2
     Route: 065
  9. BORTEZOMIB [Suspect]
     Active Substance: BORTEZOMIB
     Indication: Encephalitis autoimmune
     Dosage: THREE CYCLES AT A DOSE OF 1-1.3 MG/M2
     Route: 065
  10. BORTEZOMIB [Suspect]
     Active Substance: BORTEZOMIB
     Indication: Immunosuppression
     Dosage: THREE CYCLES AT A DOSE OF 1-1.3 MG/M2
     Route: 065
  11. BORTEZOMIB [Suspect]
     Active Substance: BORTEZOMIB
     Dosage: UNK
  12. DARATUMUMAB [Suspect]
     Active Substance: DARATUMUMAB
     Indication: Encephalitis
     Dosage: 16 MG/KG INFUSION, FOR A TOTAL OF 13 CYCLES
     Route: 042
  13. DARATUMUMAB [Suspect]
     Active Substance: DARATUMUMAB
     Indication: Encephalitis autoimmune
     Dosage: 16 MG/KG, EVERY 2 WEEKS (REMAINING FIVE CYCLES)
     Route: 041
  14. DARATUMUMAB [Suspect]
     Active Substance: DARATUMUMAB
     Indication: Immunosuppression
     Dosage: 16 MG/KG, 1/WEEK (8 CYCLES)
     Route: 041
  15. DARATUMUMAB [Suspect]
     Active Substance: DARATUMUMAB
     Dosage: REMAINING FIVE CYCLES
     Route: 041
  16. DARATUMUMAB [Suspect]
     Active Substance: DARATUMUMAB
     Dosage: 8 CYCES
     Route: 041
  17. DARATUMUMAB [Suspect]
     Active Substance: DARATUMUMAB
     Dosage: 1-8 CYCLES
     Route: 042
  18. DARATUMUMAB [Suspect]
     Active Substance: DARATUMUMAB
     Dosage: 9-13 CYCLES, EVERY 2 WEEK
     Route: 042
  19. DARATUMUMAB [Suspect]
     Active Substance: DARATUMUMAB
     Dosage: 16 MG/KG, 1/WEEK (8 CYCLES)
     Route: 042
  20. DARATUMUMAB [Suspect]
     Active Substance: DARATUMUMAB
     Dosage: 16 MG/KG, EVERY 2 WEEKS (REMAINING FIVE CYCLES)
     Route: 042
  21. DARATUMUMAB [Suspect]
     Active Substance: DARATUMUMAB
     Dosage: 8 CYCLES
     Route: 042
  22. DARATUMUMAB [Suspect]
     Active Substance: DARATUMUMAB
     Indication: Encephalitis autoimmune
     Dosage: 16 MG/KG, 1/WEEK (8 CYCES)
     Route: 042
  23. DARATUMUMAB [Suspect]
     Active Substance: DARATUMUMAB
     Indication: Immunosuppression
     Dosage: 16 MG/KG, Q2WEEKS (REMAINING FIVE CYCLES)
     Route: 042
  24. DARZALEX [Suspect]
     Active Substance: DARATUMUMAB
     Indication: Encephalitis
     Dosage: 1-8 CYCLES
     Route: 042
  25. DARZALEX [Suspect]
     Active Substance: DARATUMUMAB
     Indication: Plasma cell myeloma
     Dosage: 9-13 CYCLES
     Route: 042
  26. DARZALEX [Suspect]
     Active Substance: DARATUMUMAB
     Dosage: UNK
     Route: 065
  27. METHYLPREDNISOLONE [Suspect]
     Active Substance: METHYLPREDNISOLONE
     Indication: Encephalitis
     Dosage: 5X1G
     Route: 065
  28. METHYLPREDNISOLONE [Suspect]
     Active Substance: METHYLPREDNISOLONE
     Indication: Encephalitis autoimmune
     Dosage: 5X500MG
     Route: 065
  29. METHYLPREDNISOLONE [Suspect]
     Active Substance: METHYLPREDNISOLONE
     Indication: Immunosuppression
     Dosage: UNK
     Route: 065
  30. METHYLPREDNISOLONE [Suspect]
     Active Substance: METHYLPREDNISOLONE
     Dosage: 5X1G
  31. METHYLPREDNISOLONE [Suspect]
     Active Substance: METHYLPREDNISOLONE
     Dosage: 5X500MG
  32. PREDNISOLONE [Suspect]
     Active Substance: PREDNISOLONE
     Indication: Encephalitis
     Dosage: 5 MG, TAPERING FASHION
     Route: 048
  33. PREDNISOLONE [Suspect]
     Active Substance: PREDNISOLONE
     Indication: Encephalitis autoimmune
     Dosage: 5 MG, QD (TAPERING-REGIMEN)
     Route: 048
  34. PREDNISOLONE [Suspect]
     Active Substance: PREDNISOLONE
     Dosage: RECEIVED FOR 2 AND HALF YEARS
     Route: 048
  35. PREDNISOLONE [Suspect]
     Active Substance: PREDNISOLONE
     Dosage: RECEIVED FOR 2 AND HALF YEARS, TAPERING-REGIMEN ADMINISTERED
     Route: 048
  36. PREDNISOLONE [Suspect]
     Active Substance: PREDNISOLONE
     Indication: Encephalitis autoimmune
     Dosage: ADDITIONAL INFO: ADDITIONAL INFO: TAPERING-REGIMEN ADMINISTERED
     Route: 048
  37. PREDNISOLONE [Suspect]
     Active Substance: PREDNISOLONE
     Dosage: 5 MG, QD TAPERING-REGIMEN/ADDITIONAL INFO: ADDITIONAL INFO: TAPERING-REGIMEN ADMINISTERED
     Route: 048
  38. VELCADE [Suspect]
     Active Substance: BORTEZOMIB
     Indication: Encephalitis
     Dosage: 1-1.3 MG/M2
     Route: 065
  39. VELCADE [Suspect]
     Active Substance: BORTEZOMIB
     Dosage: UNK
     Route: 065
  40. IMMUNE GLOBULIN NOS [Suspect]
     Active Substance: IMMUNE GLOBULIN NOS
     Indication: Encephalitis autoimmune
     Dosage: DOSE: 2G/KG
  41. ACYCLOVIR [Concomitant]
     Active Substance: ACYCLOVIR
     Indication: Infection prophylaxis
     Dosage: 200 MG, QD
     Route: 065
  42. ACYCLOVIR [Concomitant]
     Active Substance: ACYCLOVIR
     Dosage: 200 MILLIGRAM DAILY;
     Route: 065
  43. ACYCLOVIR [Concomitant]
     Active Substance: ACYCLOVIR
     Dosage: 200 MG/DAYS
  44. ACYCLOVIR [Concomitant]
     Active Substance: ACYCLOVIR
     Indication: Product used for unknown indication
     Dosage: 200 MILLIGRAM DAILY
  45. COTRIMOXAZOLE [Concomitant]
     Active Substance: SULFAMETHOXAZOLE\TRIMETHOPRIM
     Indication: Infection prophylaxis
     Dosage: 2880 MG, EVERY WEEK
  46. COTRIMOXAZOLE [Concomitant]
     Active Substance: SULFAMETHOXAZOLE\TRIMETHOPRIM
     Dosage: 960 MG, THREE TIMES A WEEK
     Route: 065
  47. COTRIMOXAZOLE [Concomitant]
     Active Substance: SULFAMETHOXAZOLE\TRIMETHOPRIM
     Dosage: 960 MG THRICE WEEKLY
     Route: 065
  48. COTRIMOXAZOLE [Concomitant]
     Active Substance: SULFAMETHOXAZOLE\TRIMETHOPRIM
     Dosage: THREE TIMES A WEEK
     Route: 065
  49. COTRIMOXAZOLE [Concomitant]
     Active Substance: SULFAMETHOXAZOLE\TRIMETHOPRIM
     Dosage: THREE TIMES A WEEK
     Route: 065
  50. COTRIMOXAZOLE [Concomitant]
     Active Substance: SULFAMETHOXAZOLE\TRIMETHOPRIM
     Dosage: 960 MG, THREE TIMES A WEEK
  51. COTRIMOXAZOLE [Concomitant]
     Active Substance: SULFAMETHOXAZOLE\TRIMETHOPRIM
     Dosage: 960 MG, THREE TIMES A WEEK (2880MG, 1 WEEK)
  52. COTRIMOXAZOLE [Concomitant]
     Active Substance: SULFAMETHOXAZOLE\TRIMETHOPRIM
     Indication: Product used for unknown indication
     Dosage: THREE TIMES A WEEK
  53. HUMAN PLASMA [Concomitant]
     Active Substance: HUMAN PLASMA
     Indication: Encephalitis autoimmune
     Dosage: 12X PLASMA EXCHANGE
     Route: 065
  54. HUMAN PLASMA [Concomitant]
     Active Substance: HUMAN PLASMA
     Dosage: 8X PLASMA EXCHANGE
     Route: 065
  55. HUMAN PLASMA [Concomitant]
     Active Substance: HUMAN PLASMA
     Dosage: 6X PLASMA EXCHANGE
     Route: 065
  56. HUMAN PLASMA [Concomitant]
     Active Substance: HUMAN PLASMA
     Dosage: 25X PLASMA EXCHANGE
     Route: 065
  57. HUMAN PLASMA [Concomitant]
     Active Substance: HUMAN PLASMA
     Indication: Encephalitis autoimmune
     Dosage: 6 PLASMA EXCHANGE
  58. HUMAN PLASMA [Concomitant]
     Active Substance: HUMAN PLASMA
     Dosage: 12X PLASMA EXCHANGE
  59. HUMAN PLASMA [Concomitant]
     Active Substance: HUMAN PLASMA
     Dosage: 25X PLASMA EXCHANGE
  60. HUMAN PLASMA [Concomitant]
     Active Substance: HUMAN PLASMA
     Dosage: 8X PLASMA EXCHANGE

REACTIONS (23)
  - Aggression [Fatal]
  - Condition aggravated [Fatal]
  - Encephalitis autoimmune [Fatal]
  - Cerebellar ataxia [Fatal]
  - Cognitive disorder [Fatal]
  - Neuromyotonia [Fatal]
  - Breathing-related sleep disorder [Fatal]
  - Hand fracture [Fatal]
  - Rebound effect [Fatal]
  - Seizure [Fatal]
  - Septic shock [Fatal]
  - Bacterial infection [Fatal]
  - Cellulitis [Fatal]
  - Infection [Fatal]
  - Urinary tract infection [Fatal]
  - Bacterial sepsis [Fatal]
  - Cellulitis [Fatal]
  - Drug ineffective [Fatal]
  - Off label use [Fatal]
  - Product use in unapproved indication [Fatal]
  - Therapeutic response unexpected [Fatal]
  - Off label use [Fatal]
  - Off label use [Fatal]

NARRATIVE: CASE EVENT DATE: 20170101
